FAERS Safety Report 17089814 (Version 1)
Quarter: 2019Q4

REPORT INFORMATION
  Report Type: Spontaneous
  Country: JP (occurrence: JP)
  Receive Date: 20191128
  Receipt Date: 20191128
  Transmission Date: 20200122
  Serious: Yes (Other)
  Sender: FDA-Public Use
  Company Number: JP-SA-2019SA319773

PATIENT
  Age: 66 Year
  Sex: Male

DRUGS (5)
  1. RAMUCIRUMAB [Concomitant]
     Active Substance: RAMUCIRUMAB
     Indication: GASTRIC CANCER
     Dosage: UNK
  2. PACLITAXEL;RAMUCIRUMAB [Concomitant]
     Indication: GASTRIC CANCER
     Dosage: UNK
  3. OXALIPLATIN. [Suspect]
     Active Substance: OXALIPLATIN
     Dosage: 130 MG CARRIED OUT A TOTAL OF 7 CYCLES
  4. OXALIPLATIN. [Suspect]
     Active Substance: OXALIPLATIN
     Indication: GASTRIC CANCER STAGE IV
     Dosage: 170 MG, QCY
     Dates: start: 2018
  5. TS-1 [Concomitant]
     Active Substance: GIMERACIL\OTERACIL\TEGAFUR
     Indication: GASTRIC CANCER STAGE IV
     Dosage: UNK UNK, QCY
     Dates: start: 2018, end: 201901

REACTIONS (7)
  - Malignant neoplasm progression [Unknown]
  - Hepatic function abnormal [Not Recovered/Not Resolved]
  - Endothelial dysfunction [Not Recovered/Not Resolved]
  - Ascites [Not Recovered/Not Resolved]
  - Febrile neutropenia [Unknown]
  - Platelet count decreased [Unknown]
  - Hepatic atrophy [Not Recovered/Not Resolved]

NARRATIVE: CASE EVENT DATE: 2018
